FAERS Safety Report 5673711-8 (Version None)
Quarter: 2008Q1

REPORT INFORMATION
  Report Type: 
  Country: None (occurrence: None)
  Receive Date: 20080319
  Receipt Date: 20080307
  Transmission Date: 20080703
  Serious: Yes (Other)
  Sender: FDA-Public Use
  Company Number: US-PFIZER INC-2008006234

PATIENT
  Sex: Female
  Weight: 61.7 kg

DRUGS (3)
  1. CHANTIX [Suspect]
     Indication: SMOKING CESSATION THERAPY
  2. LAMOTRIGINE [Concomitant]
     Indication: DEPRESSION
  3. CLOZAPINE [Concomitant]
     Indication: DEPRESSION

REACTIONS (7)
  - ANGINA PECTORIS [None]
  - ANXIETY [None]
  - CHEST DISCOMFORT [None]
  - CONSTIPATION [None]
  - DRUG ADMINISTRATION ERROR [None]
  - FATIGUE [None]
  - HEART RATE INCREASED [None]
